FAERS Safety Report 5882858-2 (Version None)
Quarter: 2008Q3

REPORT INFORMATION
  Report Type: 
  Country: None (occurrence: None)
  Receive Date: 20080913
  Receipt Date: 20080819
  Transmission Date: 20090109
  Serious: No
  Sender: FDA-Public Use
  Company Number: US-ABBOTT-08P-163-0471583-00

PATIENT
  Sex: Male
  Weight: 61.29 kg

DRUGS (3)
  1. HUMIRA [Suspect]
     Indication: CROHN'S DISEASE
     Dosage: 160MG LOADING DOSE FIRST TIME AND THEN 80MG
     Route: 050
     Dates: start: 20080601, end: 20080601
  2. HUMIRA [Suspect]
     Route: 050
     Dates: start: 20080601, end: 20080807
  3. HUMIRA [Suspect]
     Dates: start: 20080807

REACTIONS (1)
  - OVERDOSE [None]
